FAERS Safety Report 6334514-4 (Version None)
Quarter: 2009Q3

REPORT INFORMATION
  Report Type: 
  Country: None (occurrence: None)
  Receive Date: 20090831
  Receipt Date: 20090821
  Transmission Date: 20100115
  Serious: Yes (Other)
  Sender: FDA-Public Use
  Company Number: US-AMGEN-QUU343936

PATIENT
  Sex: Male

DRUGS (6)
  1. ENBREL [Suspect]
     Indication: PSORIASIS
     Route: 058
     Dates: start: 20090127, end: 20090429
  2. ASPIRIN [Concomitant]
  3. NEXIUM [Concomitant]
  4. COLCHICINE [Concomitant]
     Route: 048
  5. ALLOPURINOL [Concomitant]
  6. TOPROL-XL [Concomitant]

REACTIONS (7)
  - BLOOD PRESSURE INCREASED [None]
  - DRUG INEFFECTIVE [None]
  - EYE SWELLING [None]
  - FATIGUE [None]
  - FLANK PAIN [None]
  - HEADACHE [None]
  - RENAL DISORDER [None]
